FAERS Safety Report 7427924-5 (Version None)
Quarter: 2011Q2

REPORT INFORMATION
  Report Type: 
  Country: None (occurrence: None)
  Receive Date: 20110421
  Receipt Date: 20101208
  Transmission Date: 20111010
  Serious: Yes (Other)
  Sender: FDA-Public Use
  Company Number: US-BAYER-201037935NA

PATIENT
  Sex: Female
  Weight: 140.14 kg

DRUGS (8)
  1. OCELLA [Suspect]
     Indication: ACNE
  2. SYNTHROID [Concomitant]
  3. YASMIN [Suspect]
     Indication: ACNE
     Dosage: UNK
     Dates: start: 20040101, end: 20050101
  4. ADVIL LIQUI-GELS [Concomitant]
  5. YAZ [Suspect]
     Indication: ACNE
  6. IBUPROFEN [Concomitant]
  7. LASIX [Concomitant]
  8. LEVOXYL [Concomitant]

REACTIONS (4)
  - THROMBOSIS [None]
  - GALLBLADDER DISORDER [None]
  - CHOLECYSTITIS INFECTIVE [None]
  - PULMONARY EMBOLISM [None]
